FAERS Safety Report 24143896 (Version 2)
Quarter: 2024Q3

REPORT INFORMATION
  Report Type: Spontaneous
  Country: GB (occurrence: GB)
  Receive Date: 20240727
  Receipt Date: 20240729
  Transmission Date: 20241017
  Serious: Yes (Hospitalization, Other)
  Sender: ABBVIE
  Company Number: None

PATIENT
  Age: 54 Year
  Sex: Male
  Weight: 84 kg

DRUGS (1)
  1. DALBAVANCIN [Suspect]
     Active Substance: DALBAVANCIN
     Indication: Localised infection
     Dosage: 1500MG STAT?END DATE JUL 2024
     Route: 065
     Dates: start: 20240719

REACTIONS (8)
  - Product preparation issue [Unknown]
  - Nausea [Recovering/Resolving]
  - Cold sweat [Recovered/Resolved]
  - Hyperhidrosis [Recovered/Resolved]
  - Dizziness [Recovering/Resolving]
  - Loss of consciousness [Recovered/Resolved]
  - Vomiting [Unknown]
  - Syncope [Recovered/Resolved]

NARRATIVE: CASE EVENT DATE: 20240701
